FAERS Safety Report 11145061 (Version 3)
Quarter: 2015Q4

REPORT INFORMATION
  Report Type: Report from Study
  Country: US (occurrence: US)
  Receive Date: 20150528
  Receipt Date: 20151001
  Transmission Date: 20160304
  Serious: No
  Sender: FDA-Public Use
  Company Number: PHEH2015US007620

PATIENT
  Age: 19 Year
  Sex: Female
  Weight: 40.1 kg

DRUGS (3)
  1. GILENYA [Suspect]
     Active Substance: FINGOLIMOD HYDROCHLORIDE
     Indication: MULTIPLE SCLEROSIS
     Dosage: 1 DF, QD (QAM)
     Route: 048
     Dates: start: 20150206, end: 20150417
  2. ALEVE [Concomitant]
     Active Substance: NAPROXEN SODIUM
     Indication: PAIN
     Dosage: 220 MG, PRN
     Route: 048
     Dates: start: 2014
  3. VITAMIN D3 [Concomitant]
     Active Substance: CHOLECALCIFEROL
     Indication: MULTIPLE SCLEROSIS
     Dosage: 1000 IU, QD
     Route: 048
     Dates: start: 201410

REACTIONS (4)
  - Maternal exposure during pregnancy [Unknown]
  - Vomiting [Unknown]
  - Nausea [Unknown]
  - Vertigo [Unknown]

NARRATIVE: CASE EVENT DATE: 201502
